FAERS Safety Report 5287184-0 (Version None)
Quarter: 2007Q1

REPORT INFORMATION
  Report Type: 
  Country: None (occurrence: None)
  Receive Date: 20070330
  Receipt Date: 20070320
  Transmission Date: 20070707
  Serious: Yes (Life-Threatening, Other)
  Sender: FDA-Public Use
  Company Number: 011709

PATIENT
  Age: 26 Year
  Sex: Male

DRUGS (1)
  1. ADDERALL 10 [Suspect]

REACTIONS (9)
  - DEATH OF RELATIVE [None]
  - DELUSION [None]
  - DISSOCIATION [None]
  - GASTROINTESTINAL INJURY [None]
  - GUN SHOT WOUND [None]
  - HALLUCINATION [None]
  - HOMICIDE [None]
  - PSYCHOTIC DISORDER [None]
  - SUICIDE ATTEMPT [None]
